FAERS Safety Report 25475765 (Version 1)
Quarter: 2025Q2

REPORT INFORMATION
  Report Type: Spontaneous
  Country: US (occurrence: US)
  Receive Date: 20250624
  Receipt Date: 20250624
  Transmission Date: 20250717
  Serious: Yes (Other)
  Sender: AMGEN
  Company Number: US-AMGEN-USASP2025121932

PATIENT
  Age: 23 Year
  Sex: Male

DRUGS (4)
  1. INTERFERON GAMMA-1B [Suspect]
     Active Substance: INTERFERON GAMMA-1B
     Indication: Disseminated coccidioidomycosis
     Dosage: 50 MICROGRAM/SQ. METER, 3 TIMES/WK
     Route: 058
  2. INTERFERON GAMMA-1B [Suspect]
     Active Substance: INTERFERON GAMMA-1B
     Dosage: 50 MICROGRAM/SQ. METER, 3 TIMES/WK
     Route: 058
  3. POSACONAZOLE [Concomitant]
     Active Substance: POSACONAZOLE
  4. POSACONAZOLE [Concomitant]
     Active Substance: POSACONAZOLE

REACTIONS (3)
  - Disseminated coccidioidomycosis [Unknown]
  - Off label use [Unknown]
  - Drug effective for unapproved indication [Unknown]
